FAERS Safety Report 25958124 (Version 1)
Quarter: 2025Q4

REPORT INFORMATION
  Report Type: Spontaneous
  Country: EU (occurrence: EU)
  Receive Date: 20251024
  Receipt Date: 20251024
  Transmission Date: 20260118
  Serious: Yes (Death, Other)
  Sender: MYLAN
  Company Number: None

PATIENT
  Age: 1 Year
  Sex: Female

DRUGS (3)
  1. PAROXETINE [Suspect]
     Active Substance: PAROXETINE
     Indication: Product used for unknown indication
     Dosage: 20 MILLIGRAM (THROUGHOUT THE PREGNANCY)
  2. CANNABIS SATIVA FLOWERING TOP [Suspect]
     Active Substance: CANNABIS SATIVA FLOWERING TOP
     Indication: Product used for unknown indication
     Dosage: UNK, QD (3-4 JOINTS/DAY AT THE BEGINNING OF PREGNANCY THEN 1-2/DAY AT THE END OF PREGNANCY)
  3. LEVOTHYROXINE [Suspect]
     Active Substance: LEVOTHYROXINE
     Indication: Product used for unknown indication
     Dosage: UNK

REACTIONS (6)
  - Alloimmunisation [Fatal]
  - Anaemia neonatal [Fatal]
  - Cardiogenic shock [Fatal]
  - Neonatal seizure [Fatal]
  - Foetal growth restriction [Recovered/Resolved]
  - Foetal exposure during pregnancy [Recovered/Resolved]
